FAERS Safety Report 8823325 (Version 1)
Quarter: 2012Q4

REPORT INFORMATION
  Report Type: 
  Country: CA (occurrence: CA)
  Receive Date: 20121003
  Receipt Date: 20121003
  Transmission Date: 20130627
  Serious: Yes (Life-Threatening, Other)
  Sender: FDA-Public Use
  Company Number: CA-CELGENEUS-028-21880-12092047

PATIENT
  Sex: Female

DRUGS (3)
  1. REVLIMID [Suspect]
     Indication: 5Q-SYNDROME
     Dosage: 5 Milligram
     Route: 048
     Dates: start: 201203, end: 201208
  2. REVLIMID [Suspect]
     Indication: 5Q-SYNDROME
  3. REVLIMID [Suspect]
     Indication: MDS

REACTIONS (1)
  - Acute myeloid leukaemia [Not Recovered/Not Resolved]
